FAERS Safety Report 9889052 (Version 1)
Quarter: 2014Q1

REPORT INFORMATION
  Report Type: Spontaneous
  Country: US (occurrence: None)
  Receive Date: 20140210
  Receipt Date: 20140210
  Transmission Date: 20141002
  Serious: No
  Sender: FDA-Public Use
  Company Number: None

PATIENT
  Age: 67 Year
  Sex: Female
  Weight: 88.45 kg

DRUGS (2)
  1. PRO AIR [Suspect]
     Indication: ASTHMA
     Dosage: 1 TO 2 PUFFS BY MOUTH EVERY 4. AS NEEDED INHLATION
     Route: 055
     Dates: start: 20140204, end: 20140209
  2. PRO AIR [Suspect]
     Indication: CHEST DISCOMFORT
     Dosage: 1 TO 2 PUFFS BY MOUTH EVERY 4. AS NEEDED INHLATION
     Route: 055
     Dates: start: 20140204, end: 20140209

REACTIONS (7)
  - Tremor [None]
  - Nausea [None]
  - Headache [None]
  - Dizziness [None]
  - Heart rate increased [None]
  - Discomfort [None]
  - Syncope [None]
